FAERS Safety Report 7555051-5 (Version None)
Quarter: 2011Q2

REPORT INFORMATION
  Report Type: 
  Country: None (occurrence: None)
  Receive Date: 20110610
  Receipt Date: 20110526
  Transmission Date: 20111010
  Serious: Yes (Other)
  Sender: FDA-Public Use
  Company Number: 2010-4492

PATIENT
  Age: 67 Year
  Sex: Female

DRUGS (3)
  1. BOTULINUM TOXIN TYPE A [Suspect]
     Indication: SKIN COSMETIC PROCEDURE
     Dosage: (SINGLE CYCLE), INTRAMUSCULAR
     Route: 030
     Dates: start: 20101215, end: 20101215
  2. BOTULINUM TOXIN TYPE A [Suspect]
     Indication: SKIN WRINKLING
     Dosage: (SINGLE CYCLE), INTRAMUSCULAR
     Route: 030
     Dates: start: 20101215, end: 20101215
  3. BOTULINUM TOXIN TYPE A [Suspect]
     Indication: OFF LABEL USE
     Dosage: (SINGLE CYCLE), INTRAMUSCULAR
     Route: 030
     Dates: start: 20101215, end: 20101215

REACTIONS (2)
  - EYELID PTOSIS [None]
  - OFF LABEL USE [None]
